FAERS Safety Report 8600638-1 (Version None)
Quarter: 2012Q3

REPORT INFORMATION
  Report Type: 
  Country: None (occurrence: None)
  Receive Date: 20120817
  Receipt Date: 20120815
  Transmission Date: 20120928
  Serious: No
  Sender: FDA-Public Use
  Company Number: US-PFIZER INC-2012103736

PATIENT
  Age: 71 Year
  Sex: Female

DRUGS (2)
  1. XALKORI [Suspect]
     Indication: LUNG NEOPLASM MALIGNANT
     Dosage: 250 MG, 2X/DAY
     Route: 048
     Dates: start: 20120326
  2. XALKORI [Suspect]
     Dosage: 250 MG, 2X/DAY (TAKE 1 CAPSULE TWICE DAILY)
     Route: 048
     Dates: start: 20120423

REACTIONS (7)
  - VOMITING [None]
  - DYSPEPSIA [None]
  - DECREASED APPETITE [None]
  - NAUSEA [None]
  - DIARRHOEA [None]
  - LUNG NEOPLASM MALIGNANT [None]
  - DISEASE PROGRESSION [None]
